FAERS Safety Report 7938872-6 (Version None)
Quarter: 2011Q4

REPORT INFORMATION
  Report Type: 
  Country: None (occurrence: None)
  Receive Date: 20111124
  Receipt Date: 20111115
  Transmission Date: 20120403
  Serious: Yes (Hospitalization, Other)
  Sender: FDA-Public Use
  Company Number: KR-PAR PHARMACEUTICAL, INC-2011SCPR003428

PATIENT

DRUGS (2)
  1. METRONIDAZOLE [Suspect]
     Indication: HEPATIC ENCEPHALOPATHY
     Dosage: 750 MG, / DAY
     Route: 065
  2. LACTULOSE [Concomitant]
     Indication: HEPATIC ENCEPHALOPATHY
     Dosage: UNK, UNKNOWN
     Route: 065

REACTIONS (5)
  - TOXIC ENCEPHALOPATHY [None]
  - MUSCULAR WEAKNESS [None]
  - RIB FRACTURE [None]
  - FALL [None]
  - HAEMOTHORAX [None]
